FAERS Safety Report 4503511-3 (Version None)
Quarter: 2004Q4

REPORT INFORMATION
  Report Type: 
  Country: None (occurrence: None)
  Receive Date: 20041115
  Receipt Date: 20041109
  Transmission Date: 20050328
  Serious: Yes (Hospitalization)
  Sender: FDA-Public Use
  Company Number: 200412966GDS

PATIENT
  Age: 41 Year
  Sex: Female
  Weight: 71 kg

DRUGS (3)
  1. ACTIMAX (MOXIFLOXACIN) [Suspect]
     Indication: LARYNGOTRACHEO BRONCHITIS
     Dosage: 400 MG, TOTAL DAILY, ORAL
     Route: 048
     Dates: start: 20041013, end: 20041014
  2. MUCOSOLVAN [Concomitant]
  3. FEMRANETTE MIKRO [Concomitant]

REACTIONS (2)
  - ANAPHYLACTIC REACTION [None]
  - HYPERSENSITIVITY [None]
